FAERS Safety Report 12723102 (Version 1)
Quarter: 2016Q3

REPORT INFORMATION
  Report Type: Spontaneous
  Country: US (occurrence: US)
  Receive Date: 20160908
  Receipt Date: 20160908
  Transmission Date: 20161109
  Serious: Yes (Other)
  Sender: FDA-Public Use
  Company Number: US-TEVA-690614USA

PATIENT
  Age: 98 Year
  Sex: Male

DRUGS (1)
  1. SUCRALFATE. [Suspect]
     Active Substance: SUCRALFATE
     Indication: ULCER HAEMORRHAGE

REACTIONS (3)
  - Amnesia [Unknown]
  - Dementia [Unknown]
  - Hallucination [Unknown]
